FAERS Safety Report 6822212-X (Version None)
Quarter: 2010Q3

REPORT INFORMATION
  Report Type: 
  Country: None (occurrence: None)
  Receive Date: 20100708
  Receipt Date: 20100708
  Transmission Date: 20110219
  Serious: No
  Sender: FDA-Public Use
  Company Number: None

PATIENT
  Age: 27 Month
  Sex: Male
  Weight: 11.7935 kg

DRUGS (2)
  1. CHILDREN'S ZYRTEC ALLERGY [Suspect]
     Indication: MULTIPLE ALLERGIES
     Dosage: 3-5ML ONCE/DAY PO
     Route: 048
     Dates: start: 20090918, end: 20100324
  2. FLUTICASONE NOSE SPRAY [Concomitant]

REACTIONS (2)
  - HYPOACUSIS [None]
  - PRODUCT QUALITY ISSUE [None]
